FAERS Safety Report 23105536 (Version 1)
Quarter: 2023Q4

REPORT INFORMATION
  Report Type: Spontaneous
  Country: US (occurrence: None)
  Receive Date: 20231023
  Receipt Date: 20231023
  Transmission Date: 20240109
  Serious: Yes (Hospitalization)
  Sender: FDA-Public Use
  Company Number: None

PATIENT
  Age: 68 Year
  Sex: Male
  Weight: 113 kg

DRUGS (2)
  1. LOSARTAN POTASSIUM [Suspect]
     Active Substance: LOSARTAN POTASSIUM
     Dosage: FREQUENCY : DAILY;?
     Route: 048
     Dates: start: 20150707, end: 20230208
  2. HYDROCHLOROTHIAZIDE [Suspect]
     Active Substance: HYDROCHLOROTHIAZIDE

REACTIONS (5)
  - Hyperkalaemia [None]
  - Acute kidney injury [None]
  - Urinary retention [None]
  - Hypovolaemia [None]
  - Bladder outlet obstruction [None]

NARRATIVE: CASE EVENT DATE: 20230203
